FAERS Safety Report 4835504-0 (Version None)
Quarter: 2005Q4

REPORT INFORMATION
  Report Type: 
  Country: None (occurrence: None)
  Receive Date: 20051112
  Receipt Date: 20051112
  Transmission Date: 20060501
  Serious: Yes (Hospitalization, Other)
  Sender: FDA-Public Use
  Company Number: 2005139491

PATIENT
  Age: 69 Year
  Sex: Female
  Weight: 68.4932 kg

DRUGS (4)
  1. LIPITOR [Suspect]
     Indication: CHEST PAIN
     Dosage: 10 MG (10 MG, 1 IN 1 D), ORAL
     Route: 048
     Dates: start: 20050101
  2. PLAVIX [Concomitant]
  3. LOPRESSOR [Concomitant]
  4. NITRO PATCH (GLYCERYL TRINITRATE) [Concomitant]

REACTIONS (2)
  - ARTERIOSCLEROSIS CORONARY ARTERY [None]
  - CONDITION AGGRAVATED [None]
